FAERS Safety Report 16646916 (Version 9)
Quarter: 2025Q1

REPORT INFORMATION
  Report Type: Report from Study
  Country: US (occurrence: US)
  Receive Date: 20190730
  Receipt Date: 20250218
  Transmission Date: 20250409
  Serious: Yes (Hospitalization)
  Sender: TAKEDA
  Company Number: US-SHIRE-US201924325

PATIENT
  Age: 87 Year
  Sex: Male
  Weight: 71 kg

DRUGS (18)
  1. TEDUGLUTIDE [Suspect]
     Active Substance: TEDUGLUTIDE
     Indication: Short-bowel syndrome
     Dosage: 0.345 MILLILITER, QD
     Dates: start: 20190207
  2. TEDUGLUTIDE [Suspect]
     Active Substance: TEDUGLUTIDE
     Dosage: 0.2 MILLILITER, QD
  3. TEDUGLUTIDE [Suspect]
     Active Substance: TEDUGLUTIDE
     Dosage: 0.3 MILLILITER, QOD
  4. TEDUGLUTIDE [Suspect]
     Active Substance: TEDUGLUTIDE
     Dosage: 0.3 MILLILITER, QOD
  5. TEDUGLUTIDE [Suspect]
     Active Substance: TEDUGLUTIDE
     Dosage: 0.3 MILLILITER, QOD
  6. TEDUGLUTIDE [Suspect]
     Active Substance: TEDUGLUTIDE
     Dosage: 0.3 MILLILITER, QOD
  7. TEDUGLUTIDE [Suspect]
     Active Substance: TEDUGLUTIDE
     Dosage: 3 MILLIGRAM, QD
  8. TEDUGLUTIDE [Suspect]
     Active Substance: TEDUGLUTIDE
     Dosage: 3 MILLIGRAM, QD
  9. TEDUGLUTIDE [Suspect]
     Active Substance: TEDUGLUTIDE
     Dosage: 0.3 MILLILITER, QD
  10. FLONASE ALLERGY RELIEF [Concomitant]
     Active Substance: FLUTICASONE PROPIONATE
  11. METOPROLOL SUCCINATE [Concomitant]
     Active Substance: METOPROLOL SUCCINATE
  12. ASPIRIN [Concomitant]
     Active Substance: ASPIRIN
  13. SODIUM BICARBONATE [Concomitant]
     Active Substance: SODIUM BICARBONATE
  14. POTASSIUM [Concomitant]
     Active Substance: POTASSIUM
  15. LASIX [Concomitant]
     Active Substance: FUROSEMIDE
  16. MAGNESIUM [Concomitant]
     Active Substance: MAGNESIUM
  17. OXYGEN [Concomitant]
     Active Substance: OXYGEN
  18. LEVALBUTEROL [Concomitant]
     Active Substance: LEVALBUTEROL

REACTIONS (14)
  - Speech disorder [Unknown]
  - Dehydration [Unknown]
  - Lower limb fracture [Unknown]
  - Blood magnesium abnormal [Unknown]
  - Cardiac disorder [Unknown]
  - Gait inability [Unknown]
  - Electrolyte imbalance [Unknown]
  - Needle issue [Unknown]
  - Fall [Unknown]
  - Constipation [Recovered/Resolved]
  - Drug ineffective [Unknown]
  - Blood pressure increased [Unknown]
  - Inappropriate schedule of product administration [Not Recovered/Not Resolved]
  - Insomnia [Unknown]

NARRATIVE: CASE EVENT DATE: 20190624
